FAERS Safety Report 10644203 (Version 1)
Quarter: 2014Q4

REPORT INFORMATION
  Report Type: Spontaneous
  Country: BR (occurrence: BR)
  Receive Date: 20141210
  Receipt Date: 20141210
  Transmission Date: 20150529
  Serious: Yes (Other)
  Sender: FDA-Public Use
  Company Number: BR-ABBVIE-14K-020-1317601-00

PATIENT
  Sex: Female
  Weight: 59 kg

DRUGS (8)
  1. HUMIRA [Suspect]
     Active Substance: ADALIMUMAB
     Route: 058
     Dates: end: 201306
  2. NAPROXEN. [Concomitant]
     Active Substance: NAPROXEN
     Indication: ANTIINFLAMMATORY THERAPY
     Dosage: UNSPECIFIED DOSE
     Route: 048
     Dates: start: 2009
  3. FOLIC ACID. [Concomitant]
     Active Substance: FOLIC ACID
     Indication: HEPATIC FUNCTION ABNORMAL
     Dosage: UNSPECIFIED DOSE
     Route: 048
  4. METHOTREXATE [Concomitant]
     Active Substance: METHOTREXATE
     Indication: RHEUMATOID ARTHRITIS
     Route: 048
     Dates: start: 201408
  5. HUMIRA [Suspect]
     Active Substance: ADALIMUMAB
     Indication: RHEUMATOID ARTHRITIS
     Route: 058
     Dates: start: 2011, end: 2012
  6. HUMIRA [Suspect]
     Active Substance: ADALIMUMAB
     Route: 058
     Dates: start: 201308
  7. HUMIRA [Suspect]
     Active Substance: ADALIMUMAB
     Route: 058
  8. COMBIGAN [Concomitant]
     Active Substance: BRIMONIDINE TARTRATE\TIMOLOL MALEATE
     Indication: GLAUCOMA
     Dosage: 1 DROP IN EACH EYE IN THE MORNING AND 1 DROP IN EACH EYES AT NIGHT
     Route: 047
     Dates: start: 201212

REACTIONS (12)
  - Musculoskeletal stiffness [Unknown]
  - Drug administered at inappropriate site [Not Recovered/Not Resolved]
  - Osteoarthritis [Unknown]
  - Leiomyoma [Unknown]
  - Rheumatoid arthritis [Unknown]
  - Breast cyst [Unknown]
  - Osteopenia [Unknown]
  - Myopia [Unknown]
  - Injection site pain [Not Recovered/Not Resolved]
  - Crying [Not Recovered/Not Resolved]
  - Cataract [Unknown]
  - Musculoskeletal pain [Unknown]

NARRATIVE: CASE EVENT DATE: 2011
